FAERS Safety Report 25229553 (Version 1)
Quarter: 2025Q2

REPORT INFORMATION
  Report Type: Spontaneous
  Country: US (occurrence: US)
  Receive Date: 20250423
  Receipt Date: 20250423
  Transmission Date: 20250717
  Serious: Yes (Other)
  Sender: PFIZER
  Company Number: US-PFIZER INC-PV202500046941

PATIENT

DRUGS (4)
  1. DOCETAXEL [Suspect]
     Active Substance: DOCETAXEL
  2. OLAPARIB [Concomitant]
     Active Substance: OLAPARIB
     Dates: start: 202411
  3. ABIRATERONE ACETATE [Concomitant]
     Active Substance: ABIRATERONE ACETATE
     Dates: start: 202411
  4. PREDNISONE [Concomitant]
     Active Substance: PREDNISONE
     Dates: start: 202411

REACTIONS (2)
  - Malignant neoplasm progression [Unknown]
  - Prostatic specific antigen increased [Unknown]
